FAERS Safety Report 8098562-9 (Version None)
Quarter: 2012Q1

REPORT INFORMATION
  Report Type: 
  Country: None (occurrence: None)
  Receive Date: 20120129
  Receipt Date: 20111012
  Transmission Date: 20120608
  Serious: No
  Sender: FDA-Public Use
  Company Number: US-ABBOTT-11P-163-0851827-00

PATIENT
  Sex: Female

DRUGS (1)
  1. HUMIRA [Suspect]
     Indication: RHEUMATOID ARTHRITIS
     Dates: start: 20110801

REACTIONS (8)
  - FACIAL PAIN [None]
  - HELICOBACTER INFECTION [None]
  - ORAL PAIN [None]
  - PYREXIA [None]
  - OROPHARYNGEAL PAIN [None]
  - SINUSITIS [None]
  - RHINITIS [None]
  - DIARRHOEA [None]
